FAERS Safety Report 26208207 (Version 1)
Quarter: 2025Q4

REPORT INFORMATION
  Report Type: Report from Study
  Country: US (occurrence: US)
  Receive Date: 20251229
  Receipt Date: 20251229
  Transmission Date: 20260117
  Serious: No
  Sender: IPSEN BIOPHARMACEUTICALS, INC.
  Company Number: US-IPSEN Group, Research and Development-2025-11604

PATIENT
  Age: 26 Year
  Sex: Female

DRUGS (3)
  1. BYLVAY [Suspect]
     Active Substance: ODEVIXIBAT
     Indication: Progressive familial intrahepatic cholestasis
     Route: 048
  2. BYLVAY [Suspect]
     Active Substance: ODEVIXIBAT
     Route: 048
     Dates: start: 20241017
  3. BYLVAY [Suspect]
     Active Substance: ODEVIXIBAT
     Route: 048

REACTIONS (10)
  - Diarrhoea [Recovering/Resolving]
  - Pruritus [Not Recovered/Not Resolved]
  - Alopecia [Unknown]
  - Contusion [Unknown]
  - Product dose omission issue [Unknown]
  - Off label use [Unknown]
  - Hepatic steatosis [Unknown]
  - Renal cyst [Unknown]
  - Headache [Not Recovered/Not Resolved]
  - Vitamin D decreased [Unknown]
